FAERS Safety Report 8880774 (Version 1)
Quarter: 2012Q4

REPORT INFORMATION
  Report Type: 
  Country: SE (occurrence: SE)
  Receive Date: 20121101
  Receipt Date: 20121101
  Transmission Date: 20130627
  Serious: Yes (Life-Threatening)
  Sender: FDA-Public Use
  Company Number: SE-GLAXOSMITHKLINE-B0840339A

PATIENT
  Sex: Male

DRUGS (4)
  1. PAROXETINE [Suspect]
     Dates: start: 200704
  2. SERTRALINE [Suspect]
     Dates: start: 201002
  3. SEROXAT [Suspect]
  4. MIRTAZAPINE [Concomitant]

REACTIONS (29)
  - Suicidal ideation [Not Recovered/Not Resolved]
  - Agitation [Unknown]
  - Disturbance in attention [Unknown]
  - Crying [Unknown]
  - Depression [Unknown]
  - Emotional disorder [Unknown]
  - Erectile dysfunction [Unknown]
  - Photophobia [Unknown]
  - Dissociation [Unknown]
  - Headache [Unknown]
  - Heart rate abnormal [Unknown]
  - Hot flush [Unknown]
  - Hyperacusis [Unknown]
  - Anorgasmia [Unknown]
  - Insomnia [Unknown]
  - Memory impairment [Unknown]
  - Post-traumatic stress disorder [Unknown]
  - Sexual dysfunction [Unknown]
  - Tremor [Unknown]
  - Sinus headache [Unknown]
  - Self-injurious ideation [Unknown]
  - Tinnitus [Unknown]
  - Muscle twitching [Unknown]
  - Vision blurred [Unknown]
  - Asthenia [Unknown]
  - Weight fluctuation [Unknown]
  - Anxiety [Unknown]
  - Eye movement disorder [Unknown]
  - Head titubation [Unknown]
